FAERS Safety Report 16571475 (Version 1)
Quarter: 2019Q3

REPORT INFORMATION
  Report Type: Spontaneous
  Country: US (occurrence: US)
  Receive Date: 20190531
  Receipt Date: 20190531
  Transmission Date: 20191004
  Serious: Yes (Hospitalization)
  Sender: FDA-Public Use
  Company Number: None

PATIENT
  Sex: Female
  Weight: 85.4 kg

DRUGS (1)
  1. EVEROLIMUS (RAD-001) (733504) [Suspect]
     Active Substance: EVEROLIMUS

REACTIONS (3)
  - Hypersensitivity [None]
  - Type IV hypersensitivity reaction [None]
  - Electrocardiogram ST-T change [None]

NARRATIVE: CASE EVENT DATE: 20190525
